FAERS Safety Report 11127393 (Version 1)
Quarter: 2015Q2

REPORT INFORMATION
  Report Type: Spontaneous
  Country: US (occurrence: None)
  Receive Date: 20150520
  Receipt Date: 20150520
  Transmission Date: 20150821
  Serious: Yes (Hospitalization)
  Sender: FDA-Public Use
  Company Number: None

PATIENT
  Age: 62 Year
  Sex: Male
  Weight: 94.5 kg

DRUGS (1)
  1. LITHIUM. [Suspect]
     Active Substance: LITHIUM
     Indication: SCHIZOAFFECTIVE DISORDER
     Dosage: 300 MG, EVERY DAY, PO
     Route: 048
     Dates: start: 20140820, end: 20141029

REACTIONS (11)
  - Toxicity to various agents [None]
  - Acute kidney injury [None]
  - Arthralgia [None]
  - Antipsychotic drug level above therapeutic [None]
  - Dysarthria [None]
  - Confusional state [None]
  - Myalgia [None]
  - Hypotension [None]
  - Asthenia [None]
  - Gait disturbance [None]
  - Bradycardia [None]

NARRATIVE: CASE EVENT DATE: 20141029
